FAERS Safety Report 8405466-8 (Version None)
Quarter: 2012Q2

REPORT INFORMATION
  Report Type: 
  Country: None (occurrence: None)
  Receive Date: 20120604
  Receipt Date: 20120530
  Transmission Date: 20120825
  Serious: Yes (Hospitalization)
  Sender: FDA-Public Use
  Company Number: US-BIOGENIDEC-2010BI040940

PATIENT
  Sex: Female

DRUGS (3)
  1. AVONEX [Suspect]
     Route: 030
     Dates: start: 20070528
  2. AVONEX [Suspect]
     Indication: MULTIPLE SCLEROSIS
     Route: 030
     Dates: start: 19990901, end: 20030101
  3. AVONEX [Suspect]
     Route: 030
     Dates: start: 20030101

REACTIONS (14)
  - OSTEOARTHRITIS [None]
  - CHONDROPATHY [None]
  - ARTHRITIS INFECTIVE [None]
  - MULTIPLE SCLEROSIS RELAPSE [None]
  - DRUG HYPERSENSITIVITY [None]
  - DELAYED RECOVERY FROM ANAESTHESIA [None]
  - FALL [None]
  - LOSS OF CONSCIOUSNESS [None]
  - ARTHROPATHY [None]
  - POST PROCEDURAL COMPLICATION [None]
  - MUSCLE SPASMS [None]
  - SLEEP APNOEA SYNDROME [None]
  - GAIT DISTURBANCE [None]
  - BLOOD SODIUM DECREASED [None]
